FAERS Safety Report 12497082 (Version 2)
Quarter: 2016Q3

REPORT INFORMATION
  Report Type: Spontaneous
  Country: LB (occurrence: LB)
  Receive Date: 20160624
  Receipt Date: 20160710
  Transmission Date: 20161109
  Serious: Yes (Hospitalization)
  Sender: FDA-Public Use
  Company Number: PHHY2016LB073895

PATIENT
  Age: 65 Year
  Sex: Male

DRUGS (8)
  1. HEPERONA [Concomitant]
     Indication: CARDIAC FAILURE
     Dosage: 25 MG, QD
     Route: 048
  2. LASIX [Concomitant]
     Active Substance: FUROSEMIDE
     Indication: CARDIAC FAILURE
     Dosage: 250 MG, QD
     Route: 048
  3. CONCOR [Concomitant]
     Active Substance: BISOPROLOL FUMARATE
     Indication: CARDIAC FAILURE
     Dosage: 2.5 MG, BID
     Route: 048
  4. LASIX [Concomitant]
     Active Substance: FUROSEMIDE
     Dosage: 125 MG, UNK
     Route: 048
  5. XARELTO [Concomitant]
     Active Substance: RIVAROXABAN
     Indication: ATRIAL FIBRILLATION
     Dosage: 20 MG, QD
     Route: 048
  6. ENTRESTO [Suspect]
     Active Substance: SACUBITRIL\VALSARTAN
     Indication: CARDIAC FAILURE
     Dosage: 50 MG, BID
     Route: 048
  7. PROPAFENONE HCL [Concomitant]
     Active Substance: PROPAFENONE HYDROCHLORIDE
     Indication: ATRIAL FIBRILLATION
     Dosage: 150 MG, BID
     Route: 048
  8. PROCORALAN [Concomitant]
     Active Substance: IVABRADINE
     Indication: CARDIAC FAILURE
     Dosage: 5 MG, BID
     Route: 048

REACTIONS (9)
  - Hypotension [Recovered/Resolved]
  - Pneumonia [Recovered/Resolved]
  - Dyspnoea [Unknown]
  - Blood creatinine increased [Recovered/Resolved]
  - Pulmonary oedema [Unknown]
  - Acute kidney injury [Recovered/Resolved]
  - Oedema peripheral [Unknown]
  - Hyperkalaemia [Recovered/Resolved]
  - Cardiac failure [Unknown]
